FAERS Safety Report 8030305-7 (Version None)
Quarter: 2012Q1

REPORT INFORMATION
  Report Type: 
  Country: None (occurrence: None)
  Receive Date: 20120109
  Receipt Date: 20120104
  Transmission Date: 20120608
  Serious: Yes (Hospitalization)
  Sender: FDA-Public Use
  Company Number: PHEH2011US06684

PATIENT
  Sex: Male
  Weight: 68.027 kg

DRUGS (2)
  1. EXJADE [Suspect]
     Dosage: 2 DF, DAILY
  2. EXJADE [Suspect]
     Indication: HAEMOCHROMATOSIS
     Dosage: 1000 MG
     Route: 048
     Dates: start: 20070301

REACTIONS (2)
  - PALPITATIONS [None]
  - MALAISE [None]
